FAERS Safety Report 19273007 (Version 3)
Quarter: 2023Q1

REPORT INFORMATION
  Report Type: Spontaneous
  Country: US (occurrence: US)
  Receive Date: 20210519
  Receipt Date: 20230215
  Transmission Date: 20230418
  Serious: Yes (Other)
  Sender: FDA-Public Use
  Company Number: US-JNJFOC-20210521100

PATIENT
  Age: 5 Decade
  Sex: Female

DRUGS (14)
  1. ELMIRON [Suspect]
     Active Substance: PENTOSAN POLYSULFATE SODIUM
     Indication: Cystitis interstitial
     Dosage: INITIALLY TOOK 100 MG OF ONCE PER DAY. AT SOME POINT, SHE WAS INSTRUCTED TO TAKE IT TWICE PER DAY. A
     Route: 048
     Dates: start: 1996, end: 1997
  2. ELMIRON [Suspect]
     Active Substance: PENTOSAN POLYSULFATE SODIUM
     Dosage: INITIALLY TOOK 100 MG OF ONCE PER DAY. AT SOME POINT, SHE WAS INSTRUCTED TO TAKE IT TWICE PER DAY.
     Route: 048
     Dates: end: 1997
  3. ELMIRON [Suspect]
     Active Substance: PENTOSAN POLYSULFATE SODIUM
     Dosage: INITIALLY TOOK 100 MG OF ONCE PER DAY. AT SOME POINT, SHE WAS INSTRUCTED TO TAKE IT TWICE PER DAY.
     Route: 048
     Dates: start: 1998, end: 2008
  4. ELMIRON [Suspect]
     Active Substance: PENTOSAN POLYSULFATE SODIUM
     Dosage: INITIALLY TOOK 100 MG OF ONCE PER DAY. AT SOME POINT, SHE WAS INSTRUCTED TO TAKE IT TWICE PER DAY.
     Route: 048
     Dates: start: 2009, end: 2019
  5. ELMIRON [Suspect]
     Active Substance: PENTOSAN POLYSULFATE SODIUM
     Dosage: INITIALLY TOOK 100 MG OF ONCE PER DAY. AT SOME POINT, SHE WAS INSTRUCTED TO TAKE IT TWICE PER DAY.
     Route: 048
     Dates: start: 202001, end: 202010
  6. ELMIRON [Suspect]
     Active Substance: PENTOSAN POLYSULFATE SODIUM
     Route: 048
     Dates: end: 202207
  7. ATENOLOL [Concomitant]
     Active Substance: ATENOLOL
     Indication: Hypertension
  8. TRAMADOL [Concomitant]
     Active Substance: TRAMADOL
     Indication: Pain
  9. ERGOCALCIFEROL [Concomitant]
     Active Substance: ERGOCALCIFEROL
     Indication: Chronic kidney disease
  10. TRIMETHOPRIM [Concomitant]
     Active Substance: TRIMETHOPRIM
     Indication: Infection
  11. METHIMAZOLE [Concomitant]
     Active Substance: METHIMAZOLE
     Indication: Hyperthyroidism
     Dates: start: 201902
  12. METHOCARBAMOL [Concomitant]
     Active Substance: METHOCARBAMOL
     Indication: Myalgia
     Dates: start: 2020
  13. RESTASIS [Concomitant]
     Active Substance: CYCLOSPORINE
     Indication: Eye pruritus
     Dates: start: 2021
  14. RESTASIS [Concomitant]
     Active Substance: CYCLOSPORINE
     Indication: Dry eye

REACTIONS (3)
  - Retinal degeneration [Not Recovered/Not Resolved]
  - Maculopathy [Not Recovered/Not Resolved]
  - Off label use [Unknown]

NARRATIVE: CASE EVENT DATE: 19960101
